FAERS Safety Report 5479200-8 (Version None)
Quarter: 2007Q4

REPORT INFORMATION
  Report Type: 
  Country: None (occurrence: None)
  Receive Date: 20071008
  Receipt Date: 20070927
  Transmission Date: 20080405
  Serious: Yes (Life-Threatening, Hospitalization)
  Sender: FDA-Public Use
  Company Number: GB-JNJFOC-20070905597

PATIENT
  Age: 70 Year
  Sex: Male

DRUGS (2)
  1. FENTANYL [Suspect]
     Indication: PAIN
     Route: 062
  2. ACTIQ [Suspect]
     Indication: PAIN
     Route: 002

REACTIONS (3)
  - INTENTIONAL DRUG MISUSE [None]
  - MEDICATION ERROR [None]
  - OVERDOSE [None]
